FAERS Safety Report 8252524-7 (Version None)
Quarter: 2012Q2

REPORT INFORMATION
  Report Type: 
  Country: None (occurrence: None)
  Receive Date: 20120402
  Receipt Date: 20110329
  Transmission Date: 20120825
  Serious: No
  Sender: FDA-Public Use
  Company Number: US-ABBOTT-11P-163-0804362-00

PATIENT
  Sex: Male
  Weight: 113.64 kg

DRUGS (8)
  1. FISH OIL [Concomitant]
     Indication: PRODUCT USED FOR UNKNOWN INDICATION
     Dosage: DAILY DOSE:  UNKNOWN
     Route: 065
  2. LOSARTAN [Concomitant]
     Indication: PROTEINURIA
     Dosage: DAILY DOSE:  UNKNOWN, AS USED: 50 MILLIGRAM(S)
     Route: 065
  3. TESTOSTERONE [Suspect]
     Indication: BLOOD TESTOSTERONE DECREASED
     Dosage: DAILY DOSE:  UNKNOWN; AS USED: 1 PERCENT
     Route: 062
     Dates: start: 20100101
  4. RABEPRAZOLE [Concomitant]
     Indication: GASTROOESOPHAGEAL REFLUX DISEASE
     Dosage: DAILY DOSE:  UNKNOWN, AS USED: 20 MILLIGRAM(S)
     Route: 065
  5. SILVER [Concomitant]
     Indication: PRODUCT USED FOR UNKNOWN INDICATION
     Dosage: DAILY DOSE:  UNKNOWN
     Route: 065
  6. SIMVASTATIN [Concomitant]
     Indication: BLOOD CHOLESTEROL
     Dosage: DAILY DOSE:  UNKNOWN; AS USED: 40 MILLIGRAM(S)
     Route: 065
  7. ERGOCALCIFEROL [Concomitant]
     Indication: PRODUCT USED FOR UNKNOWN INDICATION
     Dosage: DAILY DOSE:  UNKNOWN;  FREQUENCY: THREE TIMES/WEEK
     Route: 065
  8. CALCIUM PHOSPHATE AND CALCIUM SODIUM LACTATE AND ERGOCALCIFEROL [Concomitant]
     Indication: PRODUCT USED FOR UNKNOWN INDICATION
     Dosage: DAILY DOSE:  UNKNOWN, AS USED: 500 MILLIGRAM(S)
     Route: 065

REACTIONS (2)
  - CREATININE URINE INCREASED [None]
  - PROTEIN URINE PRESENT [None]
